FAERS Safety Report 10405916 (Version 2)
Quarter: 2015Q2

REPORT INFORMATION
  Report Type: Report from Study
  Country: TR (occurrence: TR)
  Receive Date: 20140825
  Receipt Date: 20150409
  Transmission Date: 20150821
  Serious: Yes (Hospitalization)
  Sender: FDA-Public Use
  Company Number: TR-NOVOPROD-419963

PATIENT
  Sex: Female
  Weight: 1.85 kg

DRUGS (5)
  1. DECAVIT                            /06014801/ [Concomitant]
     Indication: SUPPLEMENTATION THERAPY
     Dosage: ONE TIME A DAY
     Route: 064
     Dates: start: 201401, end: 20140523
  2. FERRO SANOL DUODENAL [Concomitant]
     Active Substance: FERROUS SULFATE\GLYCINE
     Indication: SUPPLEMENTATION THERAPY
     Dosage: ONE TIME A DAY
     Route: 064
     Dates: start: 201401, end: 20140523
  3. NOVORAPID [Suspect]
     Active Substance: INSULIN ASPART
     Indication: GESTATIONAL DIABETES
     Dosage: 48 U, QD
     Route: 064
     Dates: start: 20140210, end: 20140523
  4. ASPIRIN. [Concomitant]
     Active Substance: ASPIRIN
     Indication: PLATELET AGGREGATION INHIBITION
     Dosage: ONE TIME A DAY
     Route: 064
     Dates: start: 20130919, end: 20140523
  5. FISH OIL [Concomitant]
     Active Substance: FISH OIL
     Indication: SUPPLEMENTATION THERAPY
     Dosage: ONE TIME A DAY
     Route: 064
     Dates: start: 201402, end: 20140523

REACTIONS (4)
  - Foetal exposure during pregnancy [Recovered/Resolved]
  - Low birth weight baby [Unknown]
  - Premature baby [Unknown]
  - Neonatal infection [Recovered/Resolved]

NARRATIVE: CASE EVENT DATE: 20140210
